FAERS Safety Report 7830420-4 (Version None)
Quarter: 2011Q4

REPORT INFORMATION
  Report Type: 
  Country: None (occurrence: None)
  Receive Date: 20111021
  Receipt Date: 20111010
  Transmission Date: 20120403
  Serious: Yes (Death)
  Sender: FDA-Public Use
  Company Number: AT-ACTELION-A-CH2011-55502

PATIENT

DRUGS (2)
  1. VENTAVIS [Suspect]
     Indication: PULMONARY ARTERIAL HYPERTENSION
     Dosage: 2.5 ?G, Q1HOUR
     Route: 055
  2. VENTAVIS [Suspect]
     Dosage: UNK
     Route: 055

REACTIONS (2)
  - CONCOMITANT DISEASE AGGRAVATED [None]
  - RIGHT VENTRICULAR FAILURE [None]
